FAERS Safety Report 6235843-5 (Version None)
Quarter: 2009Q2

REPORT INFORMATION
  Report Type: 
  Country: None (occurrence: None)
  Receive Date: 20090619
  Receipt Date: 20070607
  Transmission Date: 20091009
  Serious: Yes (Hospitalization, Other)
  Sender: FDA-Public Use
  Company Number: US-ASTRAZENECA-2006UW25145

PATIENT
  Age: 20912 Day
  Sex: Female
  Weight: 94.8 kg

DRUGS (25)
  1. SEROQUEL [Suspect]
     Indication: ANXIETY
     Dosage: 25-600 MG
     Route: 048
     Dates: start: 20010426
  2. SEROQUEL [Suspect]
     Indication: DEPRESSION
     Dosage: 25-600 MG
     Route: 048
     Dates: start: 20010426
  3. SEROQUEL [Suspect]
     Indication: BIPOLAR DISORDER
     Dosage: 25-600 MG
     Route: 048
     Dates: start: 20010426
  4. SEROQUEL [Suspect]
     Dosage: 200 MG
     Route: 048
     Dates: start: 20010101
  5. SEROQUEL [Suspect]
     Dosage: 200 MG
     Route: 048
     Dates: start: 20010101
  6. SEROQUEL [Suspect]
     Dosage: 200 MG
     Route: 048
     Dates: start: 20010101
  7. EFFEXOR XR [Concomitant]
     Dosage: 150 MG DISPENSED
     Route: 048
     Dates: start: 20010510
  8. LORAZEPAM [Concomitant]
     Route: 048
     Dates: start: 19980302
  9. RISPERDAL [Concomitant]
     Dosage: 1 MG DISPENSED
     Dates: start: 20010611
  10. TRAZODONE HCL [Concomitant]
     Dosage: 100-200 MG
     Route: 048
     Dates: start: 19980302
  11. GLUCOPHAGE [Concomitant]
     Dosage: 850 MG DISPENSED
     Route: 048
     Dates: start: 20000630
  12. LIPITOR [Concomitant]
     Dosage: 10 MG DISPENSED
     Dates: start: 20011011
  13. HUMULIN 70/30 [Concomitant]
     Dosage: 65 UNITS IN MORNING, 55 UNITS IN EVENING
     Route: 058
     Dates: start: 20020715
  14. SYNTHROID [Concomitant]
     Dosage: 0.05 MG DISPENSED
     Route: 048
     Dates: start: 20030325
  15. AXERT [Concomitant]
     Dosage: 12.5 MG DISPENSED
     Dates: start: 20031226
  16. LITHIUM CARBONATE [Concomitant]
     Dosage: 300 MG DISPENSED
     Dates: start: 20020510
  17. ZOCOR [Concomitant]
     Route: 048
     Dates: start: 20040120
  18. LISINOPRIL [Concomitant]
     Route: 048
     Dates: start: 20060909
  19. LOPRESSOR [Concomitant]
     Route: 048
     Dates: start: 20060909
  20. ACETAMINOPHEN [Concomitant]
     Route: 048
     Dates: start: 20050105
  21. ASPIRIN [Concomitant]
     Route: 048
     Dates: start: 20060909
  22. PREDNISONE [Concomitant]
     Route: 048
     Dates: start: 20041210
  23. TRICOR [Concomitant]
     Dosage: 160 MG DISPENSED
     Route: 048
     Dates: start: 20040316
  24. GABAPENTIN [Concomitant]
     Dosage: 300-2400 MG
     Route: 048
     Dates: start: 20041101
  25. GLYBURIDE [Concomitant]
     Dosage: 5 MG DISPENSED
     Dates: start: 20011011

REACTIONS (8)
  - DELIRIUM [None]
  - DIABETES MELLITUS [None]
  - DIABETES MELLITUS INADEQUATE CONTROL [None]
  - DIABETIC COMA [None]
  - DIABETIC GASTROPARESIS [None]
  - HYPERGLYCAEMIA [None]
  - HYPOGLYCAEMIA [None]
  - TYPE 1 DIABETES MELLITUS [None]
